FAERS Safety Report 11239830 (Version 2)
Quarter: 2015Q3

REPORT INFORMATION
  Report Type: Report from Study
  Country: US (occurrence: US)
  Receive Date: 20150706
  Receipt Date: 20150805
  Transmission Date: 20151125
  Serious: Yes (Hospitalization)
  Sender: FDA-Public Use
  Company Number: US-BAYER-2015-065770

PATIENT
  Age: 69 Year
  Sex: Male

DRUGS (11)
  1. NEXAVAR [Suspect]
     Active Substance: SORAFENIB
     Indication: ACUTE MYELOID LEUKAEMIA
     Dosage: 200 MG, QD
     Route: 048
     Dates: start: 201507
  2. COREG [Concomitant]
     Active Substance: CARVEDILOL
  3. NEXAVAR [Suspect]
     Active Substance: SORAFENIB
     Indication: ACUTE MYELOID LEUKAEMIA
     Dosage: 200 MG, QD
     Route: 048
     Dates: start: 20150313, end: 20150325
  4. LISINOPRIL. [Concomitant]
     Active Substance: LISINOPRIL
     Dosage: 5 MG, UNK
  5. NEXAVAR [Suspect]
     Active Substance: SORAFENIB
     Indication: ACUTE MYELOID LEUKAEMIA
     Dosage: 200 MG, BID
     Route: 048
     Dates: start: 20150401, end: 20150603
  6. ZOVIRAX [Concomitant]
     Active Substance: ACYCLOVIR
     Dosage: 800 MG, UNK
  7. LOTRISONE [Concomitant]
     Active Substance: BETAMETHASONE DIPROPIONATE\CLOTRIMAZOLE
  8. LEVAQUIN [Concomitant]
     Active Substance: LEVOFLOXACIN
     Dosage: 500 MG, UNK
  9. LIPITOR [Concomitant]
     Active Substance: ATORVASTATIN CALCIUM
     Dosage: 10 MG, UNK
  10. LOTRISONE [Concomitant]
     Active Substance: BETAMETHASONE DIPROPIONATE\CLOTRIMAZOLE
  11. VORICONAZOLE. [Concomitant]
     Active Substance: VORICONAZOLE

REACTIONS (27)
  - Pyrexia [None]
  - Hyperuricaemia [None]
  - Off label use [None]
  - Nausea [Recovered/Resolved]
  - Dysuria [None]
  - Febrile neutropenia [Recovered/Resolved]
  - Chills [Recovered/Resolved]
  - Influenza like illness [None]
  - Gouty arthritis [None]
  - Abdominal pain [Recovered/Resolved]
  - Anaemia [None]
  - Decreased appetite [None]
  - Fatigue [Recovered/Resolved]
  - Pyrexia [Recovered/Resolved]
  - Rash [Recovered/Resolved]
  - Hypophagia [None]
  - Pollakiuria [None]
  - Dyspnoea [None]
  - Food poisoning [Recovered/Resolved]
  - Arthralgia [None]
  - Metabolic acidosis [None]
  - Diarrhoea [None]
  - Rash papular [Not Recovered/Not Resolved]
  - Micturition urgency [None]
  - Ear discomfort [Recovered/Resolved]
  - Vomiting [Recovered/Resolved]
  - Hyponatraemia [None]

NARRATIVE: CASE EVENT DATE: 20150316
